FAERS Safety Report 17812361 (Version 3)
Quarter: 2021Q1

REPORT INFORMATION
  Report Type: Spontaneous
  Country: DE (occurrence: DE)
  Receive Date: 20200521
  Receipt Date: 20210107
  Transmission Date: 20210419
  Serious: Yes (Hospitalization, Other)
  Sender: FDA-Public Use
  Company Number: DE-SA-2020SA131421

PATIENT

DRUGS (28)
  1. SALMETEROL AND FLUTICASONE [Concomitant]
     Active Substance: FLUTICASONE PROPIONATE\SALMETEROL XINAFOATE
     Dosage: INHALATION 50 ?G/500 ?G/STROKE. 2 STROKESOR 2 PUFFS, BID
     Route: 055
  2. CELESTAMINE [BETAMETHASONE;LORATADINE] [Concomitant]
     Dosage: UNK UNK, PRN
  3. BRICANYL [Concomitant]
     Active Substance: TERBUTALINE SULFATE
     Indication: ASTHMA
     Dosage: 1 DF, PRN (1 AMPOULE IF NEEDED)
     Route: 058
  4. AMLODIPINE [Concomitant]
     Active Substance: AMLODIPINE BESYLATE
     Dosage: 10 MG, QD
     Route: 048
  5. EXFORGE HCT [Concomitant]
     Active Substance: AMLODIPINE BESYLATE\HYDROCHLOROTHIAZIDE\VALSARTAN
     Indication: HYPERTENSION
     Dosage: 10/160/25, QD
     Route: 048
  6. PREDNISOLONE. [Concomitant]
     Active Substance: PREDNISOLONE
     Dosage: 5 MG
     Route: 048
  7. TIOTROPIUM BROMIDE [Concomitant]
     Active Substance: TIOTROPIUM BROMIDE
     Dosage: UNK, QD,INHALATION 18 ?G / INHALATION 1 CAPS, QD
     Route: 055
  8. FENOTEROL [Concomitant]
     Active Substance: FENOTEROL
     Dosage: 100 ?G/ STROKE 2 STOKES OR 2 PUFFS, PRN
     Route: 055
  9. NOVAMINE [Concomitant]
     Active Substance: ALANINE\ARGININE\ASPARTIC ACID\GLUTAMIC ACID\GLYCINE\HISTIDINE\ISOLEUCINE\LEUCINE\LYSINE ACETATE\METHIONINE\PHENYLALANINE\PROLINE\SERINE\THREONINE\TRYPTOPHAN\TYROSINE\VALINE
     Dosage: 500 MG, TID
  10. DECORTIN H [Concomitant]
     Active Substance: PREDNISOLONE
     Dosage: UNK UNK, QD
  11. PREDNISOLONE. [Concomitant]
     Active Substance: PREDNISOLONE
     Dosage: 10 MG
  12. SATIVEX [Concomitant]
     Active Substance: NABIXIMOLS
     Dosage: UNK,4 STROKES/PUFF
  13. DUORESP SPIROMAX [Concomitant]
     Active Substance: BUDESONIDE\FORMOTEROL
     Dosage: UNK, BID,2 STROKE IN MORNING AND 2 IN EVENING
     Route: 055
  14. SPIRIVA [Concomitant]
     Active Substance: TIOTROPIUM BROMIDE MONOHYDRATE
     Dosage: UNK
  15. BEROTEC [Concomitant]
     Active Substance: FENOTEROL HYDROBROMIDE
     Dosage: UNK UNK, PRN
  16. PREDNISOLONE. [Concomitant]
     Active Substance: PREDNISOLONE
     Dosage: 25 MG, QD
     Route: 048
  17. NUCALA [Concomitant]
     Active Substance: MEPOLIZUMAB
     Dosage: UNK UNK, QM
  18. HYDROCHLOROTHIAZIDE. [Concomitant]
     Active Substance: HYDROCHLOROTHIAZIDE
     Dosage: 25 MG, QD
     Route: 048
  19. TILIDIN [Concomitant]
     Active Substance: NALOXONE HYDROCHLORIDE\TILIDINE HYDROCHLORIDE
     Dosage: 50/4 MG IF NEEDED UNTIL 3 M/T TILL 5 DAYS
  20. DUPIXENT [Suspect]
     Active Substance: DUPILUMAB
     Indication: ASTHMA
     Dosage: 200 MG
     Route: 058
     Dates: start: 20191128, end: 2019
  21. SALBUTAMOL [Concomitant]
     Active Substance: ALBUTEROL
     Dosage: UNK UNK, PRN
  22. SPIRIVA [Concomitant]
     Active Substance: TIOTROPIUM BROMIDE MONOHYDRATE
     Indication: ASTHMA
     Dosage: 1 DF, QD
     Route: 048
  23. DUORESP [Concomitant]
     Active Substance: BUDESONIDE\FORMOTEROL
     Indication: ASTHMA
     Dosage: UNK UNK, BID
     Route: 048
  24. VIGANTOLETTEN [Concomitant]
     Active Substance: CHOLECALCIFEROL
     Dosage: 1000, QD
  25. NOVAMINSULFON [Concomitant]
     Active Substance: METAMIZOLE
     Dosage: 500 MG (4X1)
  26. DUPIXENT [Suspect]
     Active Substance: DUPILUMAB
     Dosage: 200 MG
     Route: 058
     Dates: start: 201912, end: 20200801
  27. ARCOXIA [Concomitant]
     Active Substance: ETORICOXIB
     Dosage: 90 MG, QD
  28. VALSARTAN. [Concomitant]
     Active Substance: VALSARTAN
     Dosage: 160 MG, QD
     Route: 048

REACTIONS (32)
  - Orthostatic intolerance [Recovered/Resolved]
  - Radius fracture [Unknown]
  - Hand fracture [Unknown]
  - Fracture malunion [Unknown]
  - Road traffic accident [Unknown]
  - Spinal deformity [Unknown]
  - Skin laceration [Unknown]
  - Chest pain [Unknown]
  - Hepatic steatosis [Unknown]
  - Pyrexia [Unknown]
  - Arthralgia [Recovered/Resolved]
  - Retrograde amnesia [Unknown]
  - Joint injury [Unknown]
  - Ulna fracture [Unknown]
  - Dizziness [Recovered/Resolved]
  - Fatigue [Unknown]
  - Myalgia [Unknown]
  - Hypokinesia [Unknown]
  - Syncope [Recovered/Resolved]
  - Fall [Unknown]
  - Concussion [Unknown]
  - Knee deformity [Unknown]
  - Head injury [Unknown]
  - Rib fracture [Unknown]
  - Arthralgia [Unknown]
  - Joint dislocation [Unknown]
  - Dry eye [Unknown]
  - Loss of consciousness [Unknown]
  - Contusion [Unknown]
  - Swelling [Unknown]
  - Somnolence [Unknown]
  - Eosinophil percentage increased [Unknown]

NARRATIVE: CASE EVENT DATE: 2020
